FAERS Safety Report 6378834-6 (Version None)
Quarter: 2009Q3

REPORT INFORMATION
  Report Type: 
  Country: None (occurrence: None)
  Receive Date: 20090928
  Receipt Date: 20090722
  Transmission Date: 20100115
  Serious: No
  Sender: FDA-Public Use
  Company Number: US-BAYER-200927832NA

PATIENT
  Age: 24 Year
  Sex: Female
  Weight: 48 kg

DRUGS (1)
  1. MIRENA [Suspect]
     Indication: CONTRACEPTION
     Dosage: CONTINOUS
     Route: 015
     Dates: start: 20090701

REACTIONS (6)
  - CONSTIPATION [None]
  - DECREASED APPETITE [None]
  - HYPOAESTHESIA [None]
  - MOOD SWINGS [None]
  - PARAESTHESIA [None]
  - VAGINAL HAEMORRHAGE [None]
